FAERS Safety Report 14638199 (Version 1)
Quarter: 2018Q1

REPORT INFORMATION
  Report Type: Spontaneous
  Country: US (occurrence: US)
  Receive Date: 20180314
  Receipt Date: 20180314
  Transmission Date: 20180509
  Serious: No
  Sender: FDA-Public Use
  Company Number: None

PATIENT
  Age: 65 Year
  Sex: Female
  Weight: 92.25 kg

DRUGS (2)
  1. N/A [Concomitant]
     Active Substance: UNSPECIFIED INGREDIENT
  2. RESLIZUMAB [Suspect]
     Active Substance: RESLIZUMAB
     Indication: ASTHMA
     Dates: start: 20180118, end: 20180314

REACTIONS (3)
  - Myalgia [None]
  - Genital herpes [None]
  - Infusion related reaction [None]

NARRATIVE: CASE EVENT DATE: 20180314
